FAERS Safety Report 19812857 (Version 1)
Quarter: 2021Q3

REPORT INFORMATION
  Report Type: Spontaneous
  Country: US (occurrence: US)
  Receive Date: 20210908
  Receipt Date: 20210908
  Transmission Date: 20211014
  Serious: Yes (Hospitalization)
  Sender: FDA-Public Use
  Company Number: None

PATIENT
  Age: 50 Year
  Sex: Male
  Weight: 145.15 kg

DRUGS (1)
  1. TRULICITY [Suspect]
     Active Substance: DULAGLUTIDE
     Indication: DIABETES MELLITUS
     Dosage: QUANTITY: 1 INJECTIONS?FREQUENCY: 1 A WEEK
     Dates: start: 20210802

REACTIONS (3)
  - Pain in extremity [None]
  - Ear discomfort [None]
  - Sinus disorder [None]

NARRATIVE: CASE EVENT DATE: 20210826
